FAERS Safety Report 4451722-8 (Version None)
Quarter: 2004Q3

REPORT INFORMATION
  Report Type: 
  Country: None (occurrence: None)
  Receive Date: 20040915
  Receipt Date: 20040907
  Transmission Date: 20050211
  Serious: Yes (Death, Life-Threatening, Hospitalization)
  Sender: FDA-Public Use
  Company Number: 2004227899DE

PATIENT
  Age: 89 Year
  Sex: Female
  Weight: 60 kg

DRUGS (2)
  1. CELEBREX [Suspect]
     Indication: BACK PAIN
     Dosage: 200 MG, QD, ORAL
     Route: 048
     Dates: start: 20040424
  2. TRAMAGIT (TRAMADOL HYDROCHLORIDE) [Concomitant]

REACTIONS (18)
  - ANAEMIA [None]
  - BLOOD CHOLINESTERASE DECREASED [None]
  - CACHEXIA [None]
  - CONFUSIONAL STATE [None]
  - DECUBITUS ULCER [None]
  - DIZZINESS [None]
  - DUODENAL ULCER HAEMORRHAGE [None]
  - FALL [None]
  - HALLUCINATION, VISUAL [None]
  - MELAENA [None]
  - PSYCHOTIC DISORDER [None]
  - REFLUX OESOPHAGITIS [None]
  - RESPIRATORY FAILURE [None]
  - RETROPERITONEAL INFECTION [None]
  - SHOCK [None]
  - SHOCK HAEMORRHAGIC [None]
  - SUBCUTANEOUS EMPHYSEMA [None]
  - THORACIC VERTEBRAL FRACTURE [None]
